FAERS Safety Report 21334504 (Version 1)
Quarter: 2022Q3

REPORT INFORMATION
  Report Type: Report from Study
  Country: CA (occurrence: CA)
  Receive Date: 20220914
  Receipt Date: 20220914
  Transmission Date: 20221027
  Serious: Yes (Other)
  Sender: FDA-Public Use
  Company Number: CA-BAUSCH-BL-2022-021615

PATIENT
  Age: 34 Year
  Sex: Female

DRUGS (2)
  1. CONTRAVE [Suspect]
     Active Substance: BUPROPION HYDROCHLORIDE\NALTREXONE HYDROCHLORIDE
     Indication: Weight control
     Dosage: 90/8 MG, 1 TAB IN MORNING
     Route: 048
     Dates: start: 20220715
  2. METFORMIN [Concomitant]
     Active Substance: METFORMIN HYDROCHLORIDE
     Indication: Polycystic ovaries
     Dosage: (1 IN 1 D)
     Route: 048

REACTIONS (6)
  - Alcohol poisoning [Recovered/Resolved]
  - Heart rate increased [Recovered/Resolved]
  - Constipation [Not Recovered/Not Resolved]
  - Headache [Not Recovered/Not Resolved]
  - Drug titration error [Unknown]
  - Product dose omission issue [Unknown]

NARRATIVE: CASE EVENT DATE: 20220715
